FAERS Safety Report 12339574 (Version 1)
Quarter: 2016Q2

REPORT INFORMATION
  Report Type: Spontaneous
  Country: US (occurrence: US)
  Receive Date: 20160505
  Receipt Date: 20160505
  Transmission Date: 20160815
  Serious: No
  Sender: FDA-Public Use
  Company Number: US-AMGEN-USASP2016039026

PATIENT
  Age: 77 Year
  Sex: Male

DRUGS (4)
  1. ARANESP [Suspect]
     Active Substance: DARBEPOETIN ALFA
     Indication: REFRACTORY CYTOPENIA WITH UNILINEAGE DYSPLASIA
     Dosage: 200 MUG, QWK
     Route: 058
     Dates: start: 20150528
  2. ARANESP [Suspect]
     Active Substance: DARBEPOETIN ALFA
     Indication: AGRANULOCYTOSIS
     Dosage: 300 MUG, QWK
     Route: 058
     Dates: start: 201507
  3. VIDAZA [Concomitant]
     Active Substance: AZACITIDINE
     Indication: MYELODYSPLASTIC SYNDROME
     Dosage: UNK
     Dates: start: 201508
  4. ARANESP [Suspect]
     Active Substance: DARBEPOETIN ALFA
     Dosage: 400 MUG, QWK
     Route: 058
     Dates: start: 201508

REACTIONS (2)
  - Off label use [Unknown]
  - Haemoglobin abnormal [Unknown]
